FAERS Safety Report 9186442 (Version 3)
Quarter: 2014Q1

REPORT INFORMATION
  Report Type: Spontaneous
  Country: US (occurrence: US)
  Receive Date: 20130325
  Receipt Date: 20140218
  Transmission Date: 20141002
  Serious: Yes (Hospitalization)
  Sender: FDA-Public Use
  Company Number: US-009507513-1303USA011186

PATIENT
  Sex: Male
  Weight: 84.35 kg

DRUGS (1)
  1. PROPECIA [Suspect]
     Indication: ALOPECIA
     Dosage: 1 MG, UNK
     Route: 048
     Dates: start: 20030914, end: 20051218

REACTIONS (10)
  - Nephrolithiasis [Unknown]
  - Nephrolithiasis [Unknown]
  - Renal stone removal [Unknown]
  - Haematuria [Unknown]
  - Back pain [Unknown]
  - Prostatic calcification [Unknown]
  - Cognitive disorder [Not Recovered/Not Resolved]
  - Erectile dysfunction [Unknown]
  - Depression [Unknown]
  - Sexual dysfunction [Not Recovered/Not Resolved]
